FAERS Safety Report 25019880 (Version 1)
Quarter: 2025Q1

REPORT INFORMATION
  Report Type: Report from Study
  Country: US (occurrence: US)
  Receive Date: 20250227
  Receipt Date: 20250227
  Transmission Date: 20250409
  Serious: Yes (Death)
  Sender: pharmaAND
  Company Number: US-Pharmaand-2025000160

PATIENT
  Age: 65 Year
  Sex: Male

DRUGS (1)
  1. RUBRACA [Suspect]
     Active Substance: RUCAPARIB CAMSYLATE
     Indication: Pancreatic carcinoma
     Dosage: 400 MG EVERY 12 HOURS
     Route: 048
     Dates: start: 202310

REACTIONS (3)
  - Death [Fatal]
  - Off label use [Recovered/Resolved]
  - Pancreatic carcinoma [Recovered/Resolved]

NARRATIVE: CASE EVENT DATE: 20250203
